FAERS Safety Report 24621709 (Version 1)
Quarter: 2024Q4

REPORT INFORMATION
  Report Type: Spontaneous
  Country: US (occurrence: US)
  Receive Date: 20241114
  Receipt Date: 20241114
  Transmission Date: 20250114
  Serious: No
  Sender: SANOFI AVENTIS
  Company Number: US-SANOFI-02289556

PATIENT
  Age: 28 Year
  Sex: Female

DRUGS (1)
  1. SOLIQUA 100/33 [Suspect]
     Active Substance: INSULIN GLARGINE\LIXISENATIDE
     Indication: Type 2 diabetes mellitus
     Dosage: 50 IU, QD

REACTIONS (3)
  - Accidental exposure to product [Unknown]
  - Exposure via skin contact [Unknown]
  - Intentional product misuse [Unknown]
